FAERS Safety Report 4988796-1 (Version None)
Quarter: 2006Q2

REPORT INFORMATION
  Report Type: 
  Country: None (occurrence: None)
  Receive Date: 20060502
  Receipt Date: 20060425
  Transmission Date: 20061013
  Serious: Yes (Hospitalization)
  Sender: FDA-Public Use
  Company Number: GB-MERCK-0604GBR00136

PATIENT
  Age: 57 Year
  Sex: Male
  Weight: 60 kg

DRUGS (10)
  1. INDOCIN [Suspect]
     Indication: PAIN
     Route: 048
     Dates: start: 20051212, end: 20060102
  2. PREGABALIN [Concomitant]
     Route: 048
     Dates: start: 20051124
  3. OMEPRAZOLE [Concomitant]
     Route: 048
     Dates: start: 20051219, end: 20060102
  4. SIMVASTATIN [Concomitant]
     Indication: BLOOD CHOLESTEROL INCREASED
     Route: 048
     Dates: start: 20030101, end: 20060102
  5. FUROSEMIDE [Concomitant]
     Indication: OEDEMA
     Route: 048
     Dates: start: 20040709, end: 20060102
  6. MORPHINE SULFATE [Concomitant]
     Route: 048
     Dates: start: 20040213, end: 20060102
  7. FORMOTEROL FUMARATE [Concomitant]
     Route: 055
     Dates: start: 20040709
  8. TERBUTALINE HYDROCHLORIDE [Concomitant]
     Route: 048
     Dates: start: 20031120
  9. IPRATROPIUM BROMIDE [Concomitant]
     Route: 048
     Dates: start: 20050418
  10. BACLOFEN [Concomitant]
     Route: 048
     Dates: start: 20050819, end: 20060102

REACTIONS (3)
  - CONFUSIONAL STATE [None]
  - DEPRESSED LEVEL OF CONSCIOUSNESS [None]
  - OXYGEN SATURATION DECREASED [None]
